FAERS Safety Report 16254824 (Version 1)
Quarter: 2019Q2

REPORT INFORMATION
  Report Type: Spontaneous
  Country: US (occurrence: US)
  Receive Date: 20190326
  Receipt Date: 20190326
  Transmission Date: 20190711
  Serious: Yes (Hospitalization)
  Sender: FDA-Public Use
  Company Number: None

PATIENT
  Age: 30 Year
  Sex: Female
  Weight: 75.75 kg

DRUGS (1)
  1. MITOMYCIN. [Suspect]
     Active Substance: MITOMYCIN
     Indication: ANAL CANCER
     Dosage: ?          OTHER ROUTE:IV PUSH?
     Dates: start: 20190319, end: 20190322

REACTIONS (6)
  - Anal incontinence [None]
  - Communication disorder [None]
  - Vomiting [None]
  - Speech disorder [None]
  - Fall [None]
  - Confusional state [None]

NARRATIVE: CASE EVENT DATE: 20190322
